FAERS Safety Report 5852115-9 (Version None)
Quarter: 2008Q3

REPORT INFORMATION
  Report Type: 
  Country: None (occurrence: None)
  Receive Date: 20080821
  Receipt Date: 20080811
  Transmission Date: 20090109
  Serious: Yes (Hospitalization)
  Sender: FDA-Public Use
  Company Number: FR-JNJFOC-20080804249

PATIENT
  Sex: Female

DRUGS (7)
  1. TRAMADOL HCL [Suspect]
     Indication: DRUG USE FOR UNKNOWN INDICATION
     Route: 048
  2. PREVISCAN [Interacting]
     Indication: PHLEBITIS
     Dosage: 1/2 TABLET ALTERNATED WITH 3/4 DAILY
     Route: 048
  3. BACTRIM [Suspect]
     Indication: SUPERINFECTION
     Route: 048
  4. PIASCLEDINE [Concomitant]
     Route: 065
  5. COAPROVEL [Concomitant]
     Route: 065
  6. MOPRAL [Concomitant]
     Route: 065
  7. VASTAREL [Concomitant]
     Route: 065

REACTIONS (3)
  - DRUG INTERACTION [None]
  - PURPURA [None]
  - WOUND NECROSIS [None]
